FAERS Safety Report 9689513 (Version 1)
Quarter: 2013Q4

REPORT INFORMATION
  Report Type: Spontaneous
  Country: RO (occurrence: RO)
  Receive Date: 20131115
  Receipt Date: 20131115
  Transmission Date: 20140711
  Serious: Yes (Other)
  Sender: FDA-Public Use
  Company Number: RO-ROCHE-1300297

PATIENT
  Sex: Female

DRUGS (3)
  1. PEGASYS [Suspect]
     Indication: PRODUCT USED FOR UNKNOWN INDICATION
     Route: 058
     Dates: start: 20131015
  2. PEGASYS [Suspect]
     Route: 065
     Dates: start: 20131022
  3. PEGASYS [Suspect]
     Route: 065
     Dates: start: 20131029

REACTIONS (3)
  - Administration site pain [Recovered/Resolved]
  - Increased appetite [Recovered/Resolved]
  - Product counterfeit [Unknown]
